FAERS Safety Report 6178672-3 (Version None)
Quarter: 2009Q2

REPORT INFORMATION
  Report Type: 
  Country: None (occurrence: None)
  Receive Date: 20090430
  Receipt Date: 20090427
  Transmission Date: 20091009
  Serious: Yes (Death)
  Sender: FDA-Public Use
  Company Number: 2009SP007267

PATIENT
  Age: 52 Year
  Sex: Male
  Weight: 137.4399 kg

DRUGS (14)
  1. PEG-INTRON [Suspect]
     Indication: DRUG USE FOR UNKNOWN INDICATION
     Dosage: 180 MCG; QW;
  2. FORADIL [Suspect]
     Dosage: 1 DF;BID;INH
     Route: 055
  3. OXYMORPHONE HCL [Suspect]
     Indication: DRUG USE FOR UNKNOWN INDICATION
     Dosage: 30 MG;Q12H;
  4. FLUOXETINE HCL [Suspect]
     Indication: DEPRESSION
     Dosage: 40 MG;
  5. LUNESTA [Suspect]
     Indication: SOMNOLENCE
     Dosage: 3 MG;HS;PO
     Route: 048
  6. LISINOPRIL AND HYDROCHLOROTHIAZIDE [Suspect]
     Indication: HYPERTENSION
     Dosage: 1 DF;QD;PO
     Route: 048
  7. METHOTREXATE [Suspect]
     Indication: DRUG USE FOR UNKNOWN INDICATION
     Dosage: 7.5 MG;QW;
  8. ATENOLOL [Suspect]
     Indication: HYPERTENSION
     Dosage: 25 MG; QD; PO
     Route: 048
  9. CARISOPRODOL [Suspect]
     Indication: DRUG USE FOR UNKNOWN INDICATION
     Dosage: 350 MG;TID;PO
     Route: 048
  10. HYDROXYZINE [Suspect]
     Indication: DRUG USE FOR UNKNOWN INDICATION
     Dosage: 50 MG;QID;PO
     Route: 048
  11. NABUMETONE [Suspect]
     Indication: DRUG USE FOR UNKNOWN INDICATION
     Dosage: 750 MG;BID;PO
     Route: 048
  12. SEROQUEL [Suspect]
     Indication: DRUG USE FOR UNKNOWN INDICATION
     Dosage: 800 MG;HS;PO
     Route: 048
  13. REQUIP [Suspect]
     Indication: DRUG USE FOR UNKNOWN INDICATION
     Dosage: 0.5 MG; HS; PO
     Route: 048
  14. AMITRIPTLINE HYDROCHLORIDE TAB [Suspect]
     Dosage: 25 MG;HS;PO
     Route: 048

REACTIONS (3)
  - ADVERSE EVENT [None]
  - PAIN [None]
  - UNRESPONSIVE TO STIMULI [None]
